FAERS Safety Report 10335597 (Version 2)
Quarter: 2014Q3

REPORT INFORMATION
  Report Type: Spontaneous
  Country: GB (occurrence: None)
  Receive Date: 20140721
  Receipt Date: 20140724
  Transmission Date: 20150326
  Serious: Yes (Other)
  Sender: FDA-Public Use
  Company Number: AUR-APL-2014-07693

PATIENT
  Age: 43 Year
  Sex: Female
  Weight: 110 kg

DRUGS (7)
  1. CO-DYDRAMOL [Concomitant]
     Active Substance: ACETAMINOPHEN\DIHYDROCODEINE
  2. PULMICORT TURBUHALER [Concomitant]
     Active Substance: BUDESONIDE
  3. PREDNISOLONE (PREDNISOLONE) [Concomitant]
     Active Substance: PREDNISOLONE
  4. CO-AMOXICLAV (AMOXICILLIN SODIUM, CLAVULANTE POTASSIUM) [Concomitant]
  5. PARACETAMOL (PARACETAMOL) [Concomitant]
     Active Substance: ACETAMINOPHEN
  6. RAMIPRIL 1.25MG (RAMIPRIL) UNKNOWN, 1.25MG [Suspect]
     Active Substance: RAMIPRIL
     Indication: HYPERTENSION
     Route: 048
     Dates: start: 20140320
  7. DOXYCYCLINE. [Concomitant]
     Active Substance: DOXYCYCLINE

REACTIONS (8)
  - Synovitis [None]
  - Musculoskeletal pain [None]
  - Joint swelling [None]
  - Pain in extremity [None]
  - Rheumatoid factor increased [None]
  - Arthralgia [None]
  - Peripheral swelling [None]
  - Alopecia [None]

NARRATIVE: CASE EVENT DATE: 20140614
